FAERS Safety Report 20860007 (Version 1)
Quarter: 2022Q2

REPORT INFORMATION
  Report Type: Spontaneous
  Country: US (occurrence: US)
  Receive Date: 20220523
  Receipt Date: 20220523
  Transmission Date: 20220721
  Serious: No
  Sender: FDA-Public Use
  Company Number: US-ORGANON-O2205USA001584

PATIENT
  Sex: Female
  Weight: 69.388 kg

DRUGS (1)
  1. NEXPLANON [Suspect]
     Active Substance: ETONOGESTREL
     Indication: Contraception
     Dosage: 68 MILLIGRAM, ONCE (1 IMPLANT)
     Route: 059
     Dates: start: 20220406

REACTIONS (5)
  - Limb discomfort [Not Recovered/Not Resolved]
  - Device placement issue [Unknown]
  - Implant site pruritus [Not Recovered/Not Resolved]
  - Increased appetite [Not Recovered/Not Resolved]
  - Galactorrhoea [Not Recovered/Not Resolved]

NARRATIVE: CASE EVENT DATE: 20220101
